FAERS Safety Report 6106851-X (Version None)
Quarter: 2009Q1

REPORT INFORMATION
  Report Type: 
  Country: None (occurrence: None)
  Receive Date: 20090304
  Receipt Date: 20090217
  Transmission Date: 20090719
  Serious: Yes (Death, Life-Threatening)
  Sender: FDA-Public Use
  Company Number: 2008002473

PATIENT
  Age: 70 Year
  Sex: Male
  Weight: 55 kg

DRUGS (10)
  1. ERLOTINIB (ERLOTINIB) (TABLET) (ERLOTINIB) [Suspect]
     Indication: LUNG ADENOCARCINOMA
     Dosage: 150 MG, QD, ORAL, 25 MG, QD, ORAL
     Route: 048
     Dates: start: 20080730, end: 20080902
  2. AMARYL [Concomitant]
  3. GLUCOBAY [Concomitant]
  4. METHYCOBAL (MECOBALAMIN) [Concomitant]
  5. ZYRTEC [Concomitant]
  6. PURSENNID (SENNA LEAF) [Concomitant]
  7. BROCIN-CODEINE (BROCIN-CODEINE) [Concomitant]
  8. LANOCONAZOLE (LANOCONAZOLE) [Concomitant]
  9. ZOMETA [Concomitant]
  10. MARZULENE-S [Concomitant]

REACTIONS (4)
  - DRY SKIN [None]
  - GRANULOCYTOPENIA [None]
  - MALIGNANT NEOPLASM PROGRESSION [None]
  - NEUTROPENIA [None]
